FAERS Safety Report 7082943-6 (Version None)
Quarter: 2010Q4

REPORT INFORMATION
  Report Type: 
  Country: None (occurrence: None)
  Receive Date: 20101104
  Receipt Date: 20101029
  Transmission Date: 20110411
  Serious: Yes (Death, Disabling)
  Sender: FDA-Public Use
  Company Number: PHHY2010JP59580

PATIENT
  Age: 73 Year
  Sex: Female
  Weight: 60 kg

DRUGS (16)
  1. NEORAL [Suspect]
     Indication: INTERSTITIAL LUNG DISEASE
     Dosage: 50 MG/DAY
     Route: 048
     Dates: start: 20100101, end: 20100801
  2. NEORAL [Suspect]
     Dosage: 100 MG/DAY
     Route: 048
     Dates: start: 20100801, end: 20100907
  3. PREDNISOLONE [Concomitant]
     Indication: INTERSTITIAL LUNG DISEASE
     Dosage: 60 MG
     Route: 048
     Dates: start: 20100101, end: 20100907
  4. PREDNISOLONE [Concomitant]
     Dosage: 40 MG
     Route: 042
     Dates: start: 20100907
  5. IMMUNOSUPPRESSANTS [Concomitant]
     Dosage: UNK
     Dates: end: 20100907
  6. STEROIDS NOS [Concomitant]
  7. MEROPENEM [Concomitant]
  8. PHENYTOIN [Concomitant]
  9. VANCOMYCIN [Concomitant]
     Dosage: UNK
     Dates: start: 20100916
  10. GANCICLOVIR [Concomitant]
     Indication: CYTOMEGALOVIRUS INFECTION
  11. PIPERACILLIN W/TAZOBACTAM [Concomitant]
     Dosage: UNK
     Dates: start: 20100927, end: 20100928
  12. GENTAMICIN [Concomitant]
  13. MINOCYCLINE HCL [Concomitant]
  14. FOY [Concomitant]
  15. HEPARIN [Concomitant]
  16. PLATELETS [Concomitant]
     Indication: PLATELET COUNT DECREASED
     Dosage: 10 UNITS

REACTIONS (21)
  - ALTERED STATE OF CONSCIOUSNESS [None]
  - ANTIBIOTIC RESISTANT STAPHYLOCOCCUS TEST POSITIVE [None]
  - BLOOD PRESSURE DECREASED [None]
  - CARDIAC ARREST [None]
  - COAGULOPATHY [None]
  - CYTOMEGALOVIRUS TEST POSITIVE [None]
  - DISSEMINATED INTRAVASCULAR COAGULATION [None]
  - DYSKINESIA [None]
  - DYSPNOEA [None]
  - ENCEPHALITIS [None]
  - HEART RATE INCREASED [None]
  - HEPATIC FUNCTION ABNORMAL [None]
  - MULTI-ORGAN FAILURE [None]
  - PLATELET COUNT DECREASED [None]
  - PLEURAL EFFUSION [None]
  - PSEUDOMONAL SEPSIS [None]
  - PYREXIA [None]
  - RENAL FAILURE [None]
  - RESPIRATORY FAILURE [None]
  - SIMPLEX VIRUS TEST POSITIVE [None]
  - TREMOR [None]
